FAERS Safety Report 24071539 (Version 1)
Quarter: 2024Q3

REPORT INFORMATION
  Report Type: Report from Study
  Country: GB (occurrence: GB)
  Receive Date: 20240710
  Receipt Date: 20240710
  Transmission Date: 20241016
  Serious: No
  Sender: ROCHE
  Company Number: GB-ROCHE-3133476

PATIENT
  Sex: Male

DRUGS (1)
  1. RISDIPLAM [Suspect]
     Active Substance: RISDIPLAM
     Indication: Spinal muscular atrophy
     Route: 065
     Dates: start: 202204, end: 202206

REACTIONS (5)
  - Asthenia [Unknown]
  - Dyspnoea [Unknown]
  - Headache [Unknown]
  - Eczema [Unknown]
  - Cardiac disorder [Unknown]
